FAERS Safety Report 14381056 (Version 1)
Quarter: 2018Q1

REPORT INFORMATION
  Report Type: Spontaneous
  Country: CH (occurrence: CH)
  Receive Date: 20180112
  Receipt Date: 20180112
  Transmission Date: 20180509
  Serious: Yes (Hospitalization)
  Sender: FDA-Public Use
  Company Number: CH-009507513-1801CHE001544

PATIENT
  Age: 68 Year
  Sex: Male

DRUGS (18)
  1. ELECTROLYTES (UNSPECIFIED) (+) SODIUM ACETATE [Concomitant]
  2. CALCIPARINE [Concomitant]
     Active Substance: HEPARIN CALCIUM
  3. POTASSIUM CITRATE. [Concomitant]
     Active Substance: POTASSIUM CITRATE
  4. HALDOL [Concomitant]
     Active Substance: HALOPERIDOL
  5. BUDENOFALK [Concomitant]
     Active Substance: BUDESONIDE
  6. LEUCOVORIN. [Concomitant]
     Active Substance: LEUCOVORIN
  7. BACTRIM [Concomitant]
     Active Substance: SULFAMETHOXAZOLE\TRIMETHOPRIM
  8. CEFTRIAXONE. [Concomitant]
     Active Substance: CEFTRIAXONE
     Dates: start: 20171220
  9. VALTREX [Concomitant]
     Active Substance: VALACYCLOVIR HYDROCHLORIDE
  10. ONDANSETRON [Concomitant]
     Active Substance: ONDANSETRON
  11. OXYNORM [Suspect]
     Active Substance: OXYCODONE HYDROCHLORIDE
     Route: 048
     Dates: start: 201712
  12. SERTRALINE HYDROCHLORIDE. [Concomitant]
     Active Substance: SERTRALINE HYDROCHLORIDE
  13. URSOFALK [Concomitant]
     Active Substance: URSODIOL
  14. NEXIUM MUPS [Concomitant]
     Active Substance: ESOMEPRAZOLE MAGNESIUM
  15. INVANZ [Suspect]
     Active Substance: ERTAPENEM SODIUM
     Route: 041
     Dates: start: 20171208, end: 20171220
  16. TARGIN [Suspect]
     Active Substance: NALOXONE HYDROCHLORIDE\OXYCODONE HYDROCHLORIDE
     Route: 048
     Dates: start: 201712, end: 20171220
  17. JAKAVI [Concomitant]
     Active Substance: RUXOLITINIB
  18. NOVORAPID [Concomitant]
     Active Substance: INSULIN ASPART

REACTIONS (1)
  - Confusional state [Not Recovered/Not Resolved]

NARRATIVE: CASE EVENT DATE: 20171218
